FAERS Safety Report 12686333 (Version 2)
Quarter: 2016Q3

REPORT INFORMATION
  Report Type: Spontaneous
  Country: US (occurrence: US)
  Receive Date: 20160825
  Receipt Date: 20160912
  Transmission Date: 20161109
  Serious: No
  Sender: FDA-Public Use
  Company Number: US-JAZZ-2016-US-006931

PATIENT
  Sex: Female

DRUGS (51)
  1. XYREM [Suspect]
     Active Substance: SODIUM OXYBATE
     Dosage: 4.5 G, BID
     Route: 048
     Dates: start: 201310
  2. CROMOLYN SODIUM. [Concomitant]
     Active Substance: CROMOLYN SODIUM
  3. LAMOTRIGINE. [Concomitant]
     Active Substance: LAMOTRIGINE
  4. CYCLOBENZAPRINE [Concomitant]
     Active Substance: CYCLOBENZAPRINE
  5. MICROGESTIN FE [Concomitant]
     Active Substance: ETHINYL ESTRADIOL\FERROUS FUMARATE\NORETHINDRONE ACETATE
  6. PROTONIX DR [Concomitant]
  7. FENTANYL. [Concomitant]
     Active Substance: FENTANYL
  8. SENNA [Concomitant]
     Active Substance: SENNA LEAF\SENNOSIDES\SENNOSIDES A AND B
  9. VOLTAREN [Concomitant]
     Active Substance: DICLOFENAC SODIUM
  10. HYDROMORPHONE HCL ER [Concomitant]
  11. FLUDROCORTISONE [Concomitant]
     Active Substance: FLUDROCORTISONE
  12. SUMATRIPTAN. [Concomitant]
     Active Substance: SUMATRIPTAN
  13. XANAX [Concomitant]
     Active Substance: ALPRAZOLAM
  14. XYREM [Suspect]
     Active Substance: SODIUM OXYBATE
     Indication: NARCOLEPSY
     Dosage: 3.75 G, BID
     Route: 048
     Dates: start: 200406, end: 200710
  15. TIZANIDINE HCL [Concomitant]
     Active Substance: TIZANIDINE HYDROCHLORIDE
  16. VITAMIN C TR [Concomitant]
  17. CROMOLYN [Concomitant]
     Active Substance: CROMOLYN
  18. FLORINEF ACETATE [Concomitant]
     Active Substance: FLUDROCORTISONE ACETATE
  19. XYREM [Suspect]
     Active Substance: SODIUM OXYBATE
     Indication: CATAPLEXY
     Dosage: DOSE ADJUSTMENTS
     Route: 048
  20. TRAMADOL HCL [Concomitant]
     Active Substance: TRAMADOL HYDROCHLORIDE
  21. BUSPAR [Concomitant]
     Active Substance: BUSPIRONE HYDROCHLORIDE
  22. LOMOTIL [Concomitant]
     Active Substance: ATROPINE SULFATE\DIPHENOXYLATE HYDROCHLORIDE
  23. NIZORAL [Concomitant]
     Active Substance: KETOCONAZOLE
  24. HYDROCODONE/ACETAMINOPHEN [Concomitant]
     Active Substance: ACETAMINOPHEN\HYDROCODONE
  25. MODAFINIL. [Concomitant]
     Active Substance: MODAFINIL
  26. SODIUM CHLORIDE. [Concomitant]
     Active Substance: SODIUM CHLORIDE
  27. WELCHOL [Concomitant]
     Active Substance: COLESEVELAM HYDROCHLORIDE
  28. KETOCONAZOLE. [Concomitant]
     Active Substance: KETOCONAZOLE
  29. MIRALAX [Concomitant]
     Active Substance: POLYETHYLENE GLYCOL 3350
  30. DIAZEPAM. [Concomitant]
     Active Substance: DIAZEPAM
  31. BUTRANS [Concomitant]
     Active Substance: BUPRENORPHINE
  32. IMITREX [Concomitant]
     Active Substance: SUMATRIPTAN SUCCINATE
  33. OSCIMIN SL [Concomitant]
  34. OXYCODONE AND ACETAMINOPHEN [Concomitant]
     Active Substance: ACETAMINOPHEN\OXYCODONE HYDROCHLORIDE
  35. DULOXETINE HYDROCHLORIDE. [Concomitant]
     Active Substance: DULOXETINE HYDROCHLORIDE
  36. GABAPENTIN. [Concomitant]
     Active Substance: GABAPENTIN
  37. MESTINON [Concomitant]
     Active Substance: PYRIDOSTIGMINE BROMIDE
  38. ONDANSETRON HCL [Concomitant]
     Active Substance: ONDANSETRON HYDROCHLORIDE
  39. MORPHINE SULFATE CR [Concomitant]
     Active Substance: MORPHINE SULFATE
  40. LEXAPRO [Concomitant]
     Active Substance: ESCITALOPRAM OXALATE
  41. CLONAZEPAM. [Concomitant]
     Active Substance: CLONAZEPAM
  42. ERGOCALCIFEROL. [Concomitant]
     Active Substance: ERGOCALCIFEROL
  43. PERCOCET [Concomitant]
     Active Substance: ACETAMINOPHEN\OXYCODONE HYDROCHLORIDE
  44. LOTRONEX [Concomitant]
     Active Substance: ALOSETRON HYDROCHLORIDE
  45. BISOPROLOL FUMARATE. [Concomitant]
     Active Substance: BISOPROLOL FUMARATE
  46. PSYLLIUM HUSK [Concomitant]
     Active Substance: PSYLLIUM HUSK
  47. BENADRYL ALLERGY [Concomitant]
     Active Substance: DIPHENHYDRAMINE HYDROCHLORIDE
  48. ROBAXIN [Concomitant]
     Active Substance: METHOCARBAMOL
  49. ZEBETA [Concomitant]
     Active Substance: BISOPROLOL FUMARATE
  50. MAXALT [Concomitant]
     Active Substance: RIZATRIPTAN BENZOATE
  51. PRIMIDONE. [Concomitant]
     Active Substance: PRIMIDONE

REACTIONS (2)
  - Influenza [Not Recovered/Not Resolved]
  - Somnolence [Not Recovered/Not Resolved]
